FAERS Safety Report 24329722 (Version 1)
Quarter: 2024Q3

REPORT INFORMATION
  Report Type: Spontaneous
  Country: US (occurrence: US)
  Receive Date: 20240917
  Receipt Date: 20240917
  Transmission Date: 20241016
  Serious: No
  Sender: SANOFI AVENTIS
  Company Number: US-SA-2024SA263997

PATIENT
  Sex: Male

DRUGS (2)
  1. PLAVIX [Interacting]
     Active Substance: CLOPIDOGREL BISULFATE
     Dosage: UNK
  2. CIBINQO [Interacting]
     Active Substance: ABROCITINIB
     Dosage: UNK

REACTIONS (1)
  - Drug interaction [Unknown]
